FAERS Safety Report 9270754 (Version 2)
Quarter: 2013Q3

REPORT INFORMATION
  Report Type: Report from Study
  Country: JP (occurrence: JP)
  Receive Date: 20130506
  Receipt Date: 20130719
  Transmission Date: 20140515
  Serious: Yes (Death)
  Sender: FDA-Public Use
  Company Number: JP-ROCHE-1219532

PATIENT
  Age: 75 Year
  Sex: Male

DRUGS (6)
  1. METHOXY POLYETHYLENE GLYCOL-EPOETIN BETA [Suspect]
     Indication: NEPHROGENIC ANAEMIA
     Route: 058
     Dates: start: 20120131, end: 20120914
  2. ACECOL [Concomitant]
     Indication: HYPERTENSION
     Route: 048
  3. LASIX [Concomitant]
     Indication: DIABETIC NEPHROPATHY
     Route: 048
  4. ALFAROL [Concomitant]
     Route: 048
  5. MICARDIS [Concomitant]
     Indication: HYPERTENSION
     Route: 048
  6. URSO [Concomitant]
     Indication: HEPATIC CIRRHOSIS
     Route: 048

REACTIONS (2)
  - Asthenia [Fatal]
  - Hepatic cirrhosis [Fatal]
